FAERS Safety Report 24815444 (Version 1)
Quarter: 2025Q1

REPORT INFORMATION
  Report Type: Spontaneous
  Country: KR (occurrence: KR)
  Receive Date: 20250107
  Receipt Date: 20250107
  Transmission Date: 20250408
  Serious: Yes (Hospitalization)
  Sender: SAMSUNG BIOEPIS
  Company Number: KR-SAMSUNG BIOEPIS-SB-2025-00417

PATIENT
  Age: 67 Year
  Sex: Male

DRUGS (22)
  1. TRASTUZUMAB [Suspect]
     Active Substance: TRASTUZUMAB
     Indication: Gallbladder cancer
     Route: 042
     Dates: start: 20240624
  2. NIVOLUMAB [Suspect]
     Active Substance: NIVOLUMAB
     Indication: Gallbladder cancer
     Route: 042
     Dates: start: 20240624
  3. GEMCITABINE [Suspect]
     Active Substance: GEMCITABINE
     Indication: Gallbladder cancer
     Route: 042
     Dates: start: 20240624
  4. CISPLATIN [Suspect]
     Active Substance: CISPLATIN
     Indication: Gallbladder cancer
     Route: 042
     Dates: start: 20240624
  5. CNU [Concomitant]
     Indication: Product used for unknown indication
     Dosage: QD
     Dates: start: 20240326, end: 20240722
  6. CREON [Concomitant]
     Active Substance: PANCRELIPASE AMYLASE\PANCRELIPASE LIPASE\PANCRELIPASE PROTEASE
     Indication: Product used for unknown indication
     Dosage: 25000; 1 CAPSULE TID
     Route: 048
     Dates: start: 20240415
  7. MAGMIL S [Concomitant]
     Indication: Product used for unknown indication
     Dosage: TID
     Dates: start: 20240415, end: 20240722
  8. MAGMIL S [Concomitant]
     Route: 048
     Dates: start: 20240926
  9. K CAB [Concomitant]
     Indication: Product used for unknown indication
     Dates: start: 20240415, end: 20240722
  10. HERBALS [Concomitant]
     Active Substance: HERBALS
     Indication: Product used for unknown indication
     Dosage: TID
     Dates: start: 20240523, end: 20240722
  11. MEGACE F [Concomitant]
     Indication: Product used for unknown indication
     Route: 048
     Dates: start: 20240523, end: 20240722
  12. LASIX [Concomitant]
     Active Substance: FUROSEMIDE
     Indication: Product used for unknown indication
     Dates: start: 20240624, end: 20240624
  13. LASIX [Concomitant]
     Active Substance: FUROSEMIDE
     Dates: start: 20240716, end: 20240716
  14. LASIX [Concomitant]
     Active Substance: FUROSEMIDE
     Dates: start: 20241007, end: 20241007
  15. LASIX [Concomitant]
     Active Substance: FUROSEMIDE
     Dates: start: 20241014, end: 20241014
  16. Greencross Serum Albumin Human [Concomitant]
     Indication: Product used for unknown indication
     Dates: start: 20240716, end: 20240716
  17. Greencross Serum Albumin Human [Concomitant]
     Dates: start: 20240926, end: 20240926
  18. Greencross Serum Albumin Human [Concomitant]
     Dates: start: 20241007, end: 20241007
  19. Greencross Serum Albumin Human [Concomitant]
     Dates: start: 20241014, end: 20241014
  20. Furix [Concomitant]
     Indication: Product used for unknown indication
     Dates: start: 20240716, end: 20240919
  21. GuJu Spironolactone [Concomitant]
     Indication: Product used for unknown indication
     Dates: start: 20240716, end: 20240919
  22. PENIRAMIN [Concomitant]
     Indication: Product used for unknown indication
     Dates: start: 20240926, end: 20240926

REACTIONS (2)
  - Gastrointestinal perforation [Recovered/Resolved]
  - Off label use [Unknown]

NARRATIVE: CASE EVENT DATE: 20241023
